FAERS Safety Report 10817254 (Version 2)
Quarter: 2015Q2

REPORT INFORMATION
  Report Type: Spontaneous
  Country: IT (occurrence: None)
  Receive Date: 20150213
  Receipt Date: 20150414
  Transmission Date: 20150821
  Serious: Yes (Hospitalization)
  Sender: FDA-Public Use
  Company Number: FK201500703

PATIENT
  Age: 67 Year
  Sex: Male
  Weight: 70 kg

DRUGS (1)
  1. OXALIPLATIN (MANUFACTURER UNKNOWN) (OXALIPLATIN) (OXALIPLATIN) [Suspect]
     Active Substance: OXALIPLATIN
     Indication: HETEROPLASIA
     Dosage: 100 MG, CYCLICAL
     Dates: start: 20150126, end: 20150126

REACTIONS (11)
  - Deformity [None]
  - Dyskinesia [None]
  - Clonus [None]
  - Incontinence [None]
  - Snoring [None]
  - Muscle contractions involuntary [None]
  - Hypotension [None]
  - Loss of consciousness [None]
  - Rash [None]
  - Infusion related reaction [None]
  - Dyspnoea [None]

NARRATIVE: CASE EVENT DATE: 20150126
